FAERS Safety Report 12423566 (Version 1)
Quarter: 2016Q2

REPORT INFORMATION
  Report Type: Spontaneous
  Country: US (occurrence: US)
  Receive Date: 20160601
  Receipt Date: 20160601
  Transmission Date: 20160815
  Serious: No
  Sender: FDA-Public Use
  Company Number: US-NOVEN PHARMACEUTICALS, INC.-US2015000510

PATIENT
  Age: 56 Year
  Sex: Male

DRUGS (1)
  1. DAYTRANA [Suspect]
     Active Substance: METHYLPHENIDATE
     Indication: ATTENTION DEFICIT/HYPERACTIVITY DISORDER
     Dosage: 15 MG, UNKNOWN
     Route: 062
     Dates: start: 201501, end: 2015

REACTIONS (4)
  - Application site erythema [Unknown]
  - Application site burn [Unknown]
  - Off label use [Unknown]
  - Application site irritation [Unknown]

NARRATIVE: CASE EVENT DATE: 201501
